FAERS Safety Report 5606706-0 (Version None)
Quarter: 2008Q1

REPORT INFORMATION
  Report Type: 
  Country: None (occurrence: None)
  Receive Date: 20080125
  Receipt Date: 20080117
  Transmission Date: 20080703
  Serious: Yes (Hospitalization, Other)
  Sender: FDA-Public Use
  Company Number: 2008BI001412

PATIENT
  Age: 58 Year
  Sex: Female

DRUGS (16)
  1. AVONEX [Suspect]
     Indication: MULTIPLE SCLEROSIS
     Dosage: 30 UG; QW; IM
     Route: 030
     Dates: start: 20070302
  2. THYROID TAB [Concomitant]
  3. VICODIN [Concomitant]
  4. MOTRIN [Concomitant]
  5. ATIVAN [Concomitant]
  6. FOSAMAX [Concomitant]
  7. ALBUTEROL [Concomitant]
  8. LESCOL [Concomitant]
  9. BACLOFEN [Concomitant]
  10. NEURONTIN [Concomitant]
  11. NITROSTAT [Concomitant]
  12. ASPIRIN [Concomitant]
  13. ENALAPRIL MALEATE [Concomitant]
  14. VITAMIN B-12 [Concomitant]
  15. ASCORBIC ACID [Concomitant]
  16. GINKGO BILOBA [Concomitant]

REACTIONS (4)
  - CARDIAC FAILURE CONGESTIVE [None]
  - IMPLANTABLE DEFIBRILLATOR INSERTION [None]
  - INCISION SITE COMPLICATION [None]
  - INCISION SITE OEDEMA [None]
